FAERS Safety Report 9528477 (Version 2)
Quarter: 2013Q4

REPORT INFORMATION
  Report Type: Other
  Country: GB (occurrence: GB)
  Receive Date: 20130917
  Receipt Date: 20131203
  Transmission Date: 20140711
  Serious: Yes (Death, Hospitalization)
  Sender: FDA-Public Use
  Company Number: GB-TARO PHARMACEUTICALS U.S.A., INC-2013SUN04696

PATIENT
  Age: 88 Year
  Sex: 0

DRUGS (10)
  1. WARFARIN [Suspect]
     Indication: ATRIAL FIBRILLATION
     Dosage: UNK
     Route: 048
     Dates: start: 20070327, end: 20130307
  2. AMLODIPINE [Concomitant]
  3. BENZYDAMINE HYDROCHLORIDE [Concomitant]
  4. CALCICHEW D3 [Concomitant]
  5. DIGOXIN [Concomitant]
  6. FUROSEMIDE [Concomitant]
  7. MAXITROL [Concomitant]
  8. PARACETAMOL [Concomitant]
  9. RAMIPRIL [Concomitant]
  10. SIMVASTATIN [Concomitant]

REACTIONS (2)
  - Coma scale abnormal [Not Recovered/Not Resolved]
  - Subdural haematoma [Fatal]
